FAERS Safety Report 5116679-5 (Version None)
Quarter: 2006Q3

REPORT INFORMATION
  Report Type: 
  Country: None (occurrence: None)
  Receive Date: 20060928
  Receipt Date: 20060705
  Transmission Date: 20061208
  Serious: Yes (Hospitalization)
  Sender: FDA-Public Use
  Company Number: 2006012357

PATIENT
  Age: 20 Day
  Sex: Male
  Weight: 3.9 kg

DRUGS (4)
  1. DARAPRIM [Suspect]
     Indication: CONGENITAL TOXOPLASMOSIS
     Dosage: 3MG PER DAY
     Route: 048
     Dates: start: 20060616
  2. AMPICILLIN SODIUM [Concomitant]
     Indication: NEONATAL INFECTION
     Route: 065
     Dates: start: 20060601
  3. SULFADIAZIN [Concomitant]
     Indication: CONGENITAL TOXOPLASMOSIS
     Dosage: 150MG TWICE PER DAY
     Route: 048
     Dates: start: 20060616
  4. LEDERFOLAT [Concomitant]
     Indication: CONGENITAL TOXOPLASMOSIS
     Route: 065
     Dates: start: 20060616

REACTIONS (1)
  - SUPRAVENTRICULAR TACHYCARDIA [None]
